FAERS Safety Report 10629898 (Version 2)
Quarter: 2014Q4

REPORT INFORMATION
  Report Type: Spontaneous
  Country: US (occurrence: US)
  Receive Date: 20141205
  Receipt Date: 20141205
  Transmission Date: 20150529
  Serious: No
  Sender: FDA-Public Use
  Company Number: US-BRISTOL-MYERS SQUIBB COMPANY-21341755

PATIENT
  Age: 70 Year
  Sex: Male

DRUGS (1)
  1. YERVOY [Suspect]
     Active Substance: IPILIMUMAB
     Dosage: 1 DF: UNITS NOS

REACTIONS (5)
  - Fatigue [Unknown]
  - Chromaturia [Unknown]
  - Asthenia [Unknown]
  - Constipation [Unknown]
  - Hyperhidrosis [Unknown]
